FAERS Safety Report 9311531 (Version 1)
Quarter: 2013Q2

REPORT INFORMATION
  Report Type: Spontaneous
  Country: US (occurrence: US)
  Receive Date: 20130528
  Receipt Date: 20130528
  Transmission Date: 20140414
  Serious: Yes (Hospitalization)
  Sender: FDA-Public Use
  Company Number: US-BAXTER-2013BAX018832

PATIENT
  Age: 59 Year
  Sex: Female

DRUGS (3)
  1. DIANEAL LOW CALCIUM [Suspect]
     Indication: PERITONEAL DIALYSIS
     Route: 032
  2. DIANEAL LOW CALCIUM (ULTRABAG) [Suspect]
     Indication: PERITONEAL DIALYSIS
     Route: 032
  3. EXTRANEAL [Suspect]
     Indication: PERITONEAL DIALYSIS
     Route: 032

REACTIONS (2)
  - Blood pressure decreased [Recovered/Resolved]
  - Blood count abnormal [Recovered/Resolved]
